APPROVED DRUG PRODUCT: ALA-CORT
Active Ingredient: HYDROCORTISONE
Strength: 2.5%
Dosage Form/Route: CREAM;TOPICAL
Application: A080706 | Product #007 | TE Code: AT
Applicant: CROWN LABORATORIES INC
Approved: Jan 5, 2016 | RLD: No | RS: No | Type: RX